FAERS Safety Report 22006686 (Version 1)
Quarter: 2023Q1

REPORT INFORMATION
  Report Type: Spontaneous
  Country: None (occurrence: US)
  Receive Date: 20230217
  Receipt Date: 20230217
  Transmission Date: 20230417
  Serious: Yes (Death, Other)
  Sender: FDA-Public Use
  Company Number: US-Vero Biotech-2138082

PATIENT
  Sex: Female

DRUGS (2)
  1. GENOSYL [Suspect]
     Active Substance: NITRIC OXIDE
     Indication: Acute respiratory distress syndrome
     Route: 055
     Dates: start: 20221221, end: 20221222
  2. GENOSYL [Suspect]
     Active Substance: NITRIC OXIDE

REACTIONS (2)
  - Hepatic failure [Fatal]
  - Renal failure [Unknown]

NARRATIVE: CASE EVENT DATE: 20221221
